FAERS Safety Report 6678694-X (Version None)
Quarter: 2010Q2

REPORT INFORMATION
  Report Type: 
  Country: None (occurrence: None)
  Receive Date: 20100412
  Receipt Date: 20100412
  Transmission Date: 20101027
  Serious: No
  Sender: FDA-Public Use
  Company Number: None

PATIENT
  Age: 20 Year
  Sex: Male

DRUGS (1)
  1. GADOBENATE DIMEGLUMINE [Suspect]
     Indication: SCAN WITH CONTRAST
     Dosage: 18 ML IU ONCE
     Dates: start: 20091230

REACTIONS (3)
  - CONTRAST MEDIA REACTION [None]
  - EYE PRURITUS [None]
  - EYE SWELLING [None]
